FAERS Safety Report 19755206 (Version 2)
Quarter: 2021Q4

REPORT INFORMATION
  Report Type: Report from Study
  Country: JP (occurrence: JP)
  Receive Date: 20210827
  Receipt Date: 20211014
  Transmission Date: 20220303
  Serious: Yes (Hospitalization, Other)
  Sender: FDA-Public Use
  Company Number: JP-MYLANLABS-2021M1055405

PATIENT
  Age: 26 Year
  Sex: Female

DRUGS (2)
  1. PREDNISOLONE [Suspect]
     Active Substance: PREDNISOLONE
     Indication: Thyroiditis subacute
     Route: 065
  2. PREDNISOLONE [Suspect]
     Active Substance: PREDNISOLONE
     Indication: Still^s disease

REACTIONS (7)
  - Rebound effect [Unknown]
  - Still^s disease [Unknown]
  - Condition aggravated [Unknown]
  - Acute hepatic failure [Unknown]
  - Encephalopathy [Unknown]
  - Ascites [Unknown]
  - Haemophagocytic lymphohistiocytosis [Unknown]
